FAERS Safety Report 8601391 (Version 3)
Quarter: 2012Q4

REPORT INFORMATION
  Report Type: 
  Country: JP (occurrence: JP)
  Receive Date: 20120606
  Receipt Date: 20121121
  Transmission Date: 20130627
  Serious: Yes (Other)
  Sender: FDA-Public Use
  Company Number: JP-JNJFOC-20120516994

PATIENT
  Age: 91 Year
  Sex: Female

DRUGS (1)
  1. TRAMCET [Suspect]
     Indication: PAIN
     Dosage: one per one day at bedtime
     Route: 048
     Dates: start: 20120516, end: 20120518

REACTIONS (1)
  - Pyrexia [Recovered/Resolved]
